FAERS Safety Report 5346251-3 (Version None)
Quarter: 2007Q2

REPORT INFORMATION
  Report Type: 
  Country: None (occurrence: None)
  Receive Date: 20070426
  Receipt Date: 20060329
  Transmission Date: 20071010
  Serious: Yes (Hospitalization)
  Sender: FDA-Public Use
  Company Number: US-JNJFOC-20060303909

PATIENT
  Age: 24 Year
  Sex: Male

DRUGS (1)
  1. ULTRAM [Suspect]
     Indication: PAIN
     Dosage: ORAL

REACTIONS (1)
  - GRAND MAL CONVULSION [None]
